FAERS Safety Report 23213994 (Version 2)
Quarter: 2024Q1

REPORT INFORMATION
  Report Type: Spontaneous
  Country: US (occurrence: US)
  Receive Date: 20231121
  Receipt Date: 20240223
  Transmission Date: 20240409
  Serious: Yes (Hospitalization, Other)
  Sender: FDA-Public Use
  Company Number: US-009507513-2311USA005960

PATIENT
  Age: 56 Year
  Sex: Male

DRUGS (9)
  1. NOXAFIL [Suspect]
     Active Substance: POSACONAZOLE
     Indication: Arthritis fungal
     Dosage: 300 MILLIGRAM
     Route: 048
  2. NOXAFIL [Suspect]
     Active Substance: POSACONAZOLE
     Indication: Paracoccidioides infection
  3. NOXAFIL [Suspect]
     Active Substance: POSACONAZOLE
     Indication: Disseminated coccidioidomycosis
  4. AMLODIPINE [Concomitant]
     Active Substance: AMLODIPINE BESYLATE
     Dosage: 5 MILLIGRAM, QD
  5. ROSUVASTATIN [Concomitant]
     Active Substance: ROSUVASTATIN
     Dosage: 40 MILLIGRAM
  6. FUROSEMIDE [Concomitant]
     Active Substance: FUROSEMIDE
     Dosage: TOTAL DAILY DOSE: 20 MG, PRN
  7. VALSARTAN [Concomitant]
     Active Substance: VALSARTAN
     Dosage: 80 MILLIGRAM
  8. TAMSULOSIN [Concomitant]
     Active Substance: TAMSULOSIN
     Dosage: 0.4 MILLIGRAM
  9. GABAPENTIN [Concomitant]
     Active Substance: GABAPENTIN
     Dosage: 400 MILLIGRAM, Q6H

REACTIONS (3)
  - Glucocorticoid deficiency [Not Recovered/Not Resolved]
  - Pseudoaldosteronism [Recovered/Resolved]
  - Product use in unapproved indication [Unknown]
